FAERS Safety Report 6474488-9 (Version None)
Quarter: 2009Q4

REPORT INFORMATION
  Report Type: 
  Country: None (occurrence: None)
  Receive Date: 20091204
  Receipt Date: 20091204
  Transmission Date: 20100525
  Serious: Yes (Other)
  Sender: FDA-Public Use
  Company Number: JP-ELI_LILLY_AND_COMPANY-JP200911006853

PATIENT
  Age: 75 Year
  Sex: Male

DRUGS (9)
  1. HUMALOG [Suspect]
     Indication: DIABETES MELLITUS
     Dosage: 22-12-8 IU, DAILY (1/D)
     Route: 058
     Dates: start: 20051104
  2. HUMALOG [Suspect]
     Dosage: 0-12-0 IU, DAILY (1/D)
     Route: 058
     Dates: start: 20051119
  3. HUMALOG [Suspect]
     Dosage: 0-6-0 IU, DAILY (1/D)
     Route: 058
     Dates: start: 20060301
  4. HUMALOG [Suspect]
     Dosage: UNK IU, 3/D
     Route: 058
     Dates: start: 20060301
  5. HUMALOG [Suspect]
     Dosage: 14-2-2 IU, DAILY (1/D)
     Route: 058
     Dates: start: 20071101
  6. HUMALOG MIX 50/50 [Suspect]
     Indication: DIABETES MELLITUS
     Dosage: 26-0-10 IU, DAILY (1/D)
     Route: 058
     Dates: start: 20051119
  7. HUMALOG MIX 50/50 [Suspect]
     Dosage: 28-0-16 IU, DAILY (1/D)
     Route: 058
     Dates: start: 20051202
  8. HUMALOG MIX 50/50 [Suspect]
     Dosage: 18-0-16 IU, DAILY (1/D)
     Route: 058
     Dates: start: 20060301
  9. HUMALOG [Suspect]
     Dosage: 18 IU, DAILY (1/D)
     Route: 058

REACTIONS (3)
  - ANTI-INSULIN ANTIBODY POSITIVE [None]
  - HYPERGLYCAEMIA [None]
  - HYPOGLYCAEMIA [None]
